FAERS Safety Report 9920524 (Version 1)
Quarter: 2014Q1

REPORT INFORMATION
  Report Type: Spontaneous
  Country: US (occurrence: US)
  Receive Date: 20140224
  Receipt Date: 20140224
  Transmission Date: 20141002
  Serious: No
  Sender: FDA-Public Use
  Company Number: US-NOVEN-13US008338

PATIENT
  Sex: Female

DRUGS (3)
  1. MINIVELLE [Suspect]
     Indication: HOT FLUSH
     Dosage: 0.075 MG, UNK
     Route: 062
  2. MINIVELLE [Suspect]
     Indication: NIGHT SWEATS
  3. PROGESTERONE [Concomitant]
     Indication: PRODUCT USED FOR UNKNOWN INDICATION
     Route: 048

REACTIONS (3)
  - Drug ineffective [Recovered/Resolved]
  - Depressed mood [Recovered/Resolved]
  - Product quality issue [Recovered/Resolved]
